FAERS Safety Report 8258311-8 (Version None)
Quarter: 2012Q2

REPORT INFORMATION
  Report Type: 
  Country: None (occurrence: None)
  Receive Date: 20120404
  Receipt Date: 20120328
  Transmission Date: 20120825
  Serious: Yes (Other)
  Sender: FDA-Public Use
  Company Number: FR-UCBSA-054263

PATIENT

DRUGS (1)
  1. KEPPRA [Suspect]
     Indication: EPILEPSY
     Route: 015
     Dates: start: 20110826

REACTIONS (3)
  - FOETAL EXPOSURE DURING PREGNANCY [None]
  - ASCITES [None]
  - MATERNAL DRUGS AFFECTING FOETUS [None]
